FAERS Safety Report 4618988-2 (Version None)
Quarter: 2005Q1

REPORT INFORMATION
  Report Type: 
  Country: None (occurrence: None)
  Receive Date: 20050325
  Receipt Date: 20050215
  Transmission Date: 20050727
  Serious: Yes (Other)
  Sender: FDA-Public Use
  Company Number: 200511205US

PATIENT
  Sex: Female
  Weight: 64.3 kg

DRUGS (3)
  1. KETEK [Suspect]
     Indication: ACUTE SINUSITIS
     Route: 048
     Dates: start: 20050121, end: 20050125
  2. KETEK [Suspect]
     Indication: DIZZINESS
     Route: 048
     Dates: start: 20050121, end: 20050125
  3. LIPITOR [Concomitant]
     Dosage: DOSE: UNK
     Dates: end: 20041213

REACTIONS (4)
  - DEPRESSED LEVEL OF CONSCIOUSNESS [None]
  - DIZZINESS [None]
  - FALL [None]
  - SYNCOPE [None]
